FAERS Safety Report 11038355 (Version 2)
Quarter: 2015Q2

REPORT INFORMATION
  Report Type: Spontaneous
  Country: US (occurrence: US)
  Receive Date: 20150416
  Receipt Date: 20150427
  Transmission Date: 20150821
  Serious: No
  Sender: FDA-Public Use
  Company Number: US-BAYER-2015-117087

PATIENT
  Age: 67 Year
  Sex: Female
  Weight: 76.64 kg

DRUGS (1)
  1. CLIMARA [Suspect]
     Active Substance: ESTRADIOL
     Indication: VULVAL DISORDER
     Dosage: 0.037 MG, QD
     Route: 062
     Dates: start: 20141208

REACTIONS (3)
  - Product use issue [None]
  - Product adhesion issue [None]
  - Hot flush [Recovered/Resolved]

NARRATIVE: CASE EVENT DATE: 20150327
